FAERS Safety Report 7751555-0 (Version None)
Quarter: 2011Q3

REPORT INFORMATION
  Report Type: 
  Country: None (occurrence: None)
  Receive Date: 20110914
  Receipt Date: 20110909
  Transmission Date: 20111222
  Serious: Yes (Hospitalization, Other)
  Sender: FDA-Public Use
  Company Number: PHHY2011FR68524

PATIENT
  Sex: Male
  Weight: 72 kg

DRUGS (9)
  1. CLOZAPINE [Suspect]
     Indication: SCHIZOPHRENIA
     Dosage: 200 MG TO 300 MG DAILY
     Route: 048
     Dates: start: 20100715, end: 20110808
  2. TEGRETOL [Concomitant]
     Dosage: 400MG TO 600MG DAILY
     Dates: start: 20100210
  3. CLOZAPINE [Suspect]
     Dosage: 275 MG, DAILY
     Dates: start: 20110501
  4. LEPTICUR [Concomitant]
  5. LORAZEPAM [Concomitant]
  6. CLOZAPINE [Suspect]
     Dosage: 450 MG, DAILY
  7. TEGRETOL [Concomitant]
     Dosage: 200 MG, BID
  8. CLOZAPINE [Suspect]
     Route: 048
     Dates: end: 20110808
  9. LOXAPINE HCL [Suspect]
     Dosage: 80 TO 100 DROPS DAILY
     Route: 048
     Dates: start: 20100710, end: 20110808

REACTIONS (19)
  - TACHYCARDIA [None]
  - PICA [None]
  - NAUSEA [None]
  - DYSKINESIA [None]
  - ANTIPSYCHOTIC DRUG LEVEL BELOW THERAPEUTIC [None]
  - PSYCHOTIC DISORDER [None]
  - HYPERHIDROSIS [None]
  - MALAISE [None]
  - HEADACHE [None]
  - NEURODEGENERATIVE DISORDER [None]
  - ABNORMAL BEHAVIOUR [None]
  - HYPOTENSION [None]
  - REGRESSIVE BEHAVIOUR [None]
  - GAIT DISTURBANCE [None]
  - OBSESSIVE-COMPULSIVE DISORDER [None]
  - INSOMNIA [None]
  - ANXIETY [None]
  - MUSCLE SPASMS [None]
  - SOCIAL AVOIDANT BEHAVIOUR [None]
